FAERS Safety Report 25417319 (Version 3)
Quarter: 2025Q3

REPORT INFORMATION
  Report Type: Spontaneous
  Country: US (occurrence: US)
  Receive Date: 20250610
  Receipt Date: 20250816
  Transmission Date: 20251020
  Serious: No
  Sender: ALEXION PHARMACEUTICALS
  Company Number: US-AstraZeneca-CH-00885344A

PATIENT
  Sex: Male

DRUGS (1)
  1. FARXIGA [Suspect]
     Active Substance: DAPAGLIFLOZIN PROPANEDIOL
     Indication: Type 2 diabetes mellitus
     Route: 065

REACTIONS (7)
  - Blood pressure fluctuation [Unknown]
  - Dizziness [Unknown]
  - Intentional product misuse [Unknown]
  - Pollakiuria [Unknown]
  - Feeling abnormal [Unknown]
  - Muscular weakness [Unknown]
  - Feeling abnormal [Unknown]
